FAERS Safety Report 4622256-2 (Version None)
Quarter: 2005Q1

REPORT INFORMATION
  Report Type: 
  Country: None (occurrence: None)
  Receive Date: 20050324
  Receipt Date: 20050324
  Transmission Date: 20050727
  Serious: No
  Sender: FDA-Public Use
  Company Number: None

PATIENT
  Sex: Female
  Weight: 84.3 kg

DRUGS (2)
  1. TRIPTORELIN [Suspect]
     Dosage: SEE IMAGE
     Dates: start: 20050127
  2. GOSERELIN [Suspect]
     Dosage: EVERY 28 DAYS.

REACTIONS (5)
  - CELLULITIS [None]
  - HAEMOGLOBIN DECREASED [None]
  - INFECTION [None]
  - PLATELET COUNT DECREASED [None]
  - WHITE BLOOD CELL COUNT DECREASED [None]
